FAERS Safety Report 8173056 (Version 2)
Quarter: 2014Q2

REPORT INFORMATION
  Report Type: Spontaneous
  Country: US (occurrence: US)
  Receive Date: 20111007
  Receipt Date: 20140430
  Transmission Date: 20141212
  Serious: Yes (Other)
  Sender: FDA-Public Use
  Company Number: US-BAYER-2011-091734

PATIENT
  Age: 36 Year
  Sex: Female
  Weight: 56.24 kg

DRUGS (11)
  1. YAZ [Suspect]
     Indication: DYSMENORRHOEA
  2. YAZ [Suspect]
     Indication: CONTRACEPTION
  3. YAZ [Suspect]
     Indication: MENSTRUAL CYCLE MANAGEMENT
  4. YASMIN [Suspect]
  5. SPIRONOLACTONE [Concomitant]
     Dosage: 50 MG, UNK
  6. TRETINOIN [Concomitant]
     Dosage: 0.025 UNK, UNK
  7. IBUPROFEN [Concomitant]
     Dosage: 800 MG, UNK
  8. AMPHETAMINE SALTS [Concomitant]
     Dosage: 20 MG, UNK
  9. TAZORAC [Concomitant]
     Dosage: 0.5 UNK, UNK
  10. ADDERALL [Concomitant]
  11. RETIN A [Concomitant]

REACTIONS (8)
  - Cholecystectomy [None]
  - Cholecystitis chronic [None]
  - Injury [None]
  - Pain [None]
  - General physical health deterioration [None]
  - Anxiety [None]
  - Anhedonia [None]
  - Emotional distress [None]
